FAERS Safety Report 25457877 (Version 2)
Quarter: 2025Q3

REPORT INFORMATION
  Report Type: Report from Study
  Country: IN (occurrence: IN)
  Receive Date: 20250620
  Receipt Date: 20250810
  Transmission Date: 20251020
  Serious: Yes (Death, Other)
  Sender: ALEXION PHARMACEUTICALS
  Company Number: IN-AstraZeneca-CH-00893491A

PATIENT
  Age: 49 Year
  Sex: Male

DRUGS (1)
  1. DURVALUMAB [Suspect]
     Active Substance: DURVALUMAB
     Indication: Bile duct cancer
     Dosage: 1500 MILLIGRAM, Q3W

REACTIONS (4)
  - Death [Fatal]
  - Malignant neoplasm progression [Fatal]
  - Pyrexia [Fatal]
  - Dyspepsia [Unknown]

NARRATIVE: CASE EVENT DATE: 20250601
